FAERS Safety Report 16291349 (Version 1)
Quarter: 2019Q2

REPORT INFORMATION
  Report Type: Spontaneous
  Country: CN (occurrence: CN)
  Receive Date: 20190509
  Receipt Date: 20190509
  Transmission Date: 20190711
  Serious: Yes (Death, Hospitalization)
  Sender: FDA-Public Use
  Company Number: CN-PFIZER INC-2019196669

PATIENT
  Age: 31 Year
  Sex: Female
  Weight: 40 kg

DRUGS (3)
  1. CYTOSAR [Suspect]
     Active Substance: CYTARABINE
     Indication: ACUTE LEUKAEMIA
     Dosage: 0.025 G, 2X/DAY
     Route: 041
     Dates: start: 20190330, end: 20190412
  2. DACOGEN [Suspect]
     Active Substance: DECITABINE
     Indication: ACUTE LEUKAEMIA
     Dosage: 26.000 MG, 1X/DAY (+ NORMAL SALINE 100 ML)
     Route: 041
     Dates: start: 20190325, end: 20190329
  3. ACLARUBICIN HYDROCHLORIDE [Suspect]
     Active Substance: ACLARUBICIN HYDROCHLORIDE
     Indication: ACUTE LEUKAEMIA
     Dosage: 10 MG, 1X/DAY (+ NORMAL SALINE 250ML)
     Route: 041
     Dates: start: 20190330, end: 20190402

REACTIONS (5)
  - Bone marrow failure [Not Recovered/Not Resolved]
  - Septic shock [Fatal]
  - Pulmonary haemorrhage [Unknown]
  - Respiratory failure [Unknown]
  - Pneumonia [Unknown]

NARRATIVE: CASE EVENT DATE: 20190501
